FAERS Safety Report 15669578 (Version 6)
Quarter: 2020Q4

REPORT INFORMATION
  Report Type: Spontaneous
  Country: US (occurrence: US)
  Receive Date: 20181129
  Receipt Date: 20201019
  Transmission Date: 20210113
  Serious: Yes (Hospitalization, Other)
  Sender: FDA-Public Use
  Company Number: US-PFIZER INC-2018488061

PATIENT
  Age: 41 Year
  Sex: Female
  Weight: 90.72 kg

DRUGS (2)
  1. GENOTROPIN [Suspect]
     Active Substance: SOMATROPIN
     Indication: HYPOTHALAMO-PITUITARY DISORDER
     Dosage: 0.4 MG, DAILY
     Dates: start: 20151010
  2. GENOTROPIN [Suspect]
     Active Substance: SOMATROPIN
     Dosage: 0.4 MG, 1X/DAY (0.4MG. INJECTED NIGHTLY)

REACTIONS (9)
  - Renal impairment [Recovered/Resolved with Sequelae]
  - Blood cholesterol increased [Unknown]
  - Eye disorder [Unknown]
  - Illness [Recovered/Resolved with Sequelae]
  - Nephrolithiasis [Unknown]
  - Sepsis [Recovered/Resolved with Sequelae]
  - Asthenia [Unknown]
  - Weight increased [Unknown]
  - Pyrexia [Unknown]

NARRATIVE: CASE EVENT DATE: 201808
